FAERS Safety Report 23669139 (Version 1)
Quarter: 2024Q1

REPORT INFORMATION
  Report Type: Spontaneous
  Country: JP (occurrence: JP)
  Receive Date: 20240325
  Receipt Date: 20240325
  Transmission Date: 20240410
  Serious: Yes (Death, Hospitalization)
  Sender: FDA-Public Use
  Company Number: JP-Eisai-202306550_HAL_P_1

PATIENT
  Age: 81 Year
  Sex: Female

DRUGS (10)
  1. HALAVEN [Suspect]
     Active Substance: ERIBULIN MESYLATE
     Indication: Breast cancer metastatic
     Dosage: DOSE UNKNOWN
     Route: 042
     Dates: start: 20220509, end: 20220509
  2. FENTANYL [Concomitant]
     Active Substance: FENTANYL\FENTANYL CITRATE
     Indication: Analgesic therapy
     Dosage: DOSE AND FREQUENCY UNKNOWN.
     Route: 061
  3. LANSOPRAZOLE [Concomitant]
     Active Substance: LANSOPRAZOLE
     Indication: Prophylaxis against gastrointestinal ulcer
     Dosage: DOSE AND FREQUENCY UNKNOWN.
     Route: 065
  4. MIYA-BM [Concomitant]
     Active Substance: CLOSTRIDIUM BUTYRICUM SPORES STRAIN M-55
     Indication: Prophylaxis against gastrointestinal ulcer
     Dosage: DOSE AND FREQUENCY UNKNOWN.
     Route: 065
  5. MAGNESIUM OXIDE [Concomitant]
     Active Substance: MAGNESIUM OXIDE
     Indication: Product used for unknown indication
     Dosage: DOSE AND FREQUENCY UNKNOWN.
     Route: 065
  6. CELECOXIB [Concomitant]
     Active Substance: CELECOXIB
     Indication: Analgesic therapy
     Dosage: DOSE AND FREQUENCY UNKNOWN.
     Route: 065
  7. PREGABALIN [Concomitant]
     Active Substance: PREGABALIN
     Indication: Analgesic therapy
     Dosage: DOSE AND FREQUENCY UNKNOWN.
     Route: 065
  8. VITAMEDIN [BENFOTIAMINE;CYANOCOBALAMIN;PYRIDOXINE HYDROCHLORIDE] [Concomitant]
     Indication: Analgesic therapy
     Dosage: DOSE AND FREQUENCY UNKNOWN.
     Route: 065
  9. HERBALS [Concomitant]
     Active Substance: HERBALS
     Indication: Analgesic therapy
     Dosage: DOSE AND FREQUENCY UNKNOWN.
     Route: 065
  10. ALLOID G [Concomitant]
     Active Substance: SODIUM ALGINATE
     Indication: Product used for unknown indication
     Dosage: DOSE AND FREQUENCY UNKNOWN.
     Route: 065

REACTIONS (2)
  - Pneumonia bacterial [Fatal]
  - Neutropenia [Fatal]

NARRATIVE: CASE EVENT DATE: 20220516
